FAERS Safety Report 4886548-4 (Version None)
Quarter: 2006Q1

REPORT INFORMATION
  Report Type: 
  Country: None (occurrence: None)
  Receive Date: 20060118
  Receipt Date: 20060105
  Transmission Date: 20060701
  Serious: Yes (Disabling)
  Sender: FDA-Public Use
  Company Number: 2006007440

PATIENT
  Age: 51 Year
  Sex: Male

DRUGS (4)
  1. CELEBREX [Suspect]
     Indication: ARTHRALGIA
  2. CELEBREX [Suspect]
     Indication: PAIN
  3. VIOXX [Suspect]
     Indication: ARTHRALGIA
  4. VIOXX [Suspect]
     Indication: PAIN

REACTIONS (13)
  - ANOREXIA [None]
  - ASTHENIA [None]
  - CARDIOVASCULAR DISORDER [None]
  - CORONARY ARTERY DISEASE [None]
  - DYSPNOEA [None]
  - EMOTIONAL DISORDER [None]
  - FATIGUE [None]
  - HYPERTENSION [None]
  - HYPOAESTHESIA [None]
  - MYOCARDIAL INFARCTION [None]
  - OEDEMA PERIPHERAL [None]
  - PAIN [None]
  - PALLOR [None]
